FAERS Safety Report 6656162-9 (Version None)
Quarter: 2010Q1

REPORT INFORMATION
  Report Type: 
  Country: None (occurrence: None)
  Receive Date: 20100329
  Receipt Date: 20100325
  Transmission Date: 20100710
  Serious: Yes (Life-Threatening, Hospitalization)
  Sender: FDA-Public Use
  Company Number: PHHY2010IT18432

PATIENT
  Sex: Female

DRUGS (4)
  1. EXJADE [Suspect]
     Indication: THALASSAEMIA BETA
     Dosage: 500 MG/KG, QD
     Route: 048
  2. PREDNISONE TAB [Concomitant]
     Dosage: 25 MG ALTERNATE TO 12.5 MG/DAY
  3. OMEPRAZOLE [Concomitant]
     Dosage: 20 MG DAILY
  4. BENZYLPENICILLIN BENZATINIC [Concomitant]
     Dosage: 1200000 UNITS EVERY 3 MONTHS

REACTIONS (6)
  - CATHETER REMOVAL [None]
  - CHEST PAIN [None]
  - DEEP VEIN THROMBOSIS [None]
  - MEDICAL DEVICE COMPLICATION [None]
  - PNEUMONIA [None]
  - PYREXIA [None]
